FAERS Safety Report 16915999 (Version 4)
Quarter: 2020Q2

REPORT INFORMATION
  Report Type: Spontaneous
  Country: GB (occurrence: GB)
  Receive Date: 20191014
  Receipt Date: 20200511
  Transmission Date: 20200713
  Serious: Yes (Other)
  Sender: FDA-Public Use
  Company Number: GB-PURDUE PHARMA-GBR-2019-0071326

PATIENT
  Sex: Female

DRUGS (1)
  1. BUTRANS [Suspect]
     Active Substance: BUPRENORPHINE
     Indication: PRODUCT USED FOR UNKNOWN INDICATION
     Dosage: 15 MCG, Q1H  (STRENGTH 15MG)
     Route: 062

REACTIONS (6)
  - Application site discolouration [Not Recovered/Not Resolved]
  - Application site vesicles [Unknown]
  - Application site burn [Recovered/Resolved]
  - Wrong technique in product usage process [Unknown]
  - Burns third degree [Recovered/Resolved]
  - Sensitive skin [Unknown]
